FAERS Safety Report 4438921-6 (Version None)
Quarter: 2004Q3

REPORT INFORMATION
  Report Type: 
  Country: None (occurrence: None)
  Receive Date: 20040830
  Receipt Date: 20040812
  Transmission Date: 20050211
  Serious: No
  Sender: FDA-Public Use
  Company Number: 207763

PATIENT
  Age: 40 Year
  Sex: Female
  Weight: 106 kg

DRUGS (4)
  1. XOLAIR [Suspect]
     Indication: ASTHMA
     Dosage: 300 MG, 1/MONTH, SUBCUTANEOUS
     Route: 058
     Dates: start: 20030416
  2. ALLEGRA [Concomitant]
  3. ADVAIR (SALMETEROL XINAFOATE, FLUTICASONE PROPIONATE) [Concomitant]
  4. SINGULAIR [Concomitant]

REACTIONS (7)
  - COUGH [None]
  - DYSPNOEA [None]
  - FORCED EXPIRATORY VOLUME DECREASED [None]
  - PEAK EXPIRATORY FLOW RATE DECREASED [None]
  - TREATMENT NONCOMPLIANCE [None]
  - VOMITING [None]
  - WHEEZING [None]
